FAERS Safety Report 5015713-0 (Version None)
Quarter: 2006Q2

REPORT INFORMATION
  Report Type: 
  Country: None (occurrence: None)
  Receive Date: 20060601
  Receipt Date: 20060502
  Transmission Date: 20061013
  Serious: Yes (Hospitalization)
  Sender: FDA-Public Use
  Company Number: US-BRISTOL-MYERS SQUIBB COMPANY-13364294

PATIENT
  Age: 65 Year
  Sex: Female
  Weight: 53 kg

DRUGS (12)
  1. ERBITUX [Suspect]
     Indication: BREAST CANCER METASTATIC
     Dosage: THERAPY START DATE 21-NOV-2005.
     Route: 042
     Dates: start: 20060413, end: 20060413
  2. CARBOPLATIN [Suspect]
     Indication: BREAST CANCER METASTATIC
     Dosage: GIVEN DAY 1 + 8. THERAPY START DATE 21-NOV-2005.
     Route: 042
     Dates: start: 20060413, end: 20060413
  3. CAMPTOSAR [Suspect]
     Indication: BREAST CANCER METASTATIC
     Dosage: GIVEN DAY 1 + 8. THERAPY START DATE 21-NOV-2005.
     Route: 042
     Dates: start: 20060413, end: 20060413
  4. TOPROL-XL [Concomitant]
     Indication: HYPERTENSION
     Route: 048
     Dates: start: 20040816
  5. NORVASC [Concomitant]
     Indication: HYPERTENSION
     Route: 048
     Dates: start: 20041018
  6. ALTACE [Concomitant]
     Indication: HYPERTENSION
     Route: 048
     Dates: start: 20040816
  7. ZETIA [Concomitant]
     Indication: HYPERCHOLESTEROLAEMIA
     Route: 048
     Dates: start: 20041018
  8. LORTAB [Concomitant]
     Indication: PAIN
     Dosage: LORTAB 5/500. 1-2 TABS AS NEEDED
     Route: 048
     Dates: start: 20050823
  9. COMPAZINE [Concomitant]
     Indication: PROPHYLAXIS OF NAUSEA AND VOMITING
     Dosage: 10 MG EVERY 4-6 HOURS AS NEEDED.
     Route: 048
     Dates: start: 20051121
  10. MAGNESIUM SULFATE [Concomitant]
     Indication: HYPOMAGNESAEMIA
     Dosage: DOSAGE FORM = 1 TABLET.
     Route: 048
     Dates: start: 20051212
  11. ASPIRIN [Concomitant]
     Indication: CARDIOVASCULAR EVENT PROPHYLAXIS
     Route: 048
     Dates: start: 20060329
  12. IMDUR [Concomitant]
     Indication: HYPERTENSION
     Route: 048
     Dates: start: 20060329

REACTIONS (1)
  - CARDIAC FAILURE CONGESTIVE [None]
